FAERS Safety Report 8891149 (Version 1)
Quarter: 2012Q4

REPORT INFORMATION
  Report Type: 
  Country: SE (occurrence: SE)
  Receive Date: 20121107
  Receipt Date: 20121107
  Transmission Date: 20130627
  Serious: Yes (Hospitalization)
  Sender: FDA-Public Use
  Company Number: SE-PFIZER INC-2012270834

PATIENT
  Sex: Male
  Weight: 93.2 kg

DRUGS (12)
  1. GENOTROPIN [Suspect]
     Dosage: 0.2 mg, 1x/day, 7 injections/week
     Route: 058
     Dates: start: 20090914
  2. ATENOLOL [Concomitant]
     Dosage: UNK
     Dates: start: 20080310
  3. CITALOPRAM [Concomitant]
     Indication: DEPRESSION
     Dosage: UNK
     Dates: start: 20080310
  4. TROMBYL [Concomitant]
     Indication: ANTICOAGULANT THERAPY
     Dosage: UNK
     Dates: start: 20080310
  5. ENALAPRIL [Concomitant]
     Indication: HYPERTENSION
     Dosage: UNK
     Dates: start: 20080429
  6. AMLODIPIN [Concomitant]
     Indication: HYPERTENSION
     Dosage: UNK
     Dates: start: 20080515
  7. NEBIDO [Concomitant]
     Indication: HYPOGONADISM
     Dosage: UNK
     Dates: start: 20080623
  8. NITROMEX [Concomitant]
     Indication: ANGINA PECTORIS
     Dosage: UNK
     Dates: start: 20080814
  9. IMDUR [Concomitant]
     Indication: ANGINA PECTORIS
     Dosage: UNK
     Dates: start: 20080822
  10. HYDROCORTISONE [Concomitant]
     Indication: ADRENAL INSUFFICIENCY
     Dosage: UNK
     Dates: start: 20090202
  11. PLAVIX [Concomitant]
     Indication: ANTIPLATELET THERAPY
     Dosage: UNK
     Dates: start: 20090204
  12. CRESTOR [Concomitant]
     Indication: HYPERLIPIDEMIA
     Dosage: UNK
     Dates: start: 20090312

REACTIONS (1)
  - Cardiac disorder [Unknown]
